FAERS Safety Report 4409333-6 (Version None)
Quarter: 2004Q3

REPORT INFORMATION
  Report Type: 
  Country: None (occurrence: None)
  Receive Date: 20040722
  Receipt Date: 20040714
  Transmission Date: 20050211
  Serious: No
  Sender: FDA-Public Use
  Company Number: 04H-163-0267137-00

PATIENT

DRUGS (4)
  1. LEUCOVORIN CALCIUM [Suspect]
     Indication: CHEMOTHERAPY
     Dosage: 20 MG/M2, 1 PER WK X 4 WK, RPT, EVERY 6 WKS
  2. FLUOROURACIL [Suspect]
     Indication: CHEMOTHERAPY
     Dosage: 500 MG/M2, 1 PER X 4 WKS, RPT, EVERY 6 WKS
  3. IRINOTECAN [Suspect]
     Indication: CHEMOTHERAPY
     Dosage: 125 MG/M2, 1 PER X 4 WKS, RPT, EVERY 6 WKS
  4. BEVACIZUMAB [Suspect]
     Indication: CHEMOTHERAPY
     Dosage: 5 MG/M2, 1 PER X 4 WKS, RPT, EVERY 6 WKS

REACTIONS (1)
  - GASTROINTESTINAL PERFORATION [None]
